FAERS Safety Report 8992668 (Version 2)
Quarter: 2013Q1

REPORT INFORMATION
  Report Type: Spontaneous
  Country: CA (occurrence: CA)
  Receive Date: 20130101
  Receipt Date: 20130118
  Transmission Date: 20140127
  Serious: Yes (Other)
  Sender: FDA-Public Use
  Company Number: CA-AMGEN-CANSP2012072713

PATIENT
  Age: 17 Year
  Sex: Male

DRUGS (4)
  1. ENBREL [Suspect]
     Indication: JUVENILE IDIOPATHIC ARTHRITIS
     Dosage: UNK
     Dates: start: 20120827, end: 20121112
  2. METHOTREXATE [Concomitant]
     Dosage: UNK
  3. SULFASALAZINE [Concomitant]
     Dosage: UNK
  4. NAPROXEN                           /00256202/ [Concomitant]
     Dosage: UNK

REACTIONS (2)
  - Hepatic failure [Recovered/Resolved]
  - Localised infection [Recovered/Resolved]
